FAERS Safety Report 24351583 (Version 1)
Quarter: 2024Q3

REPORT INFORMATION
  Report Type: Report from Study
  Country: IT (occurrence: IT)
  Receive Date: 20240923
  Receipt Date: 20240923
  Transmission Date: 20241017
  Serious: No
  Sender: ROCHE
  Company Number: None

PATIENT
  Age: 70 Year
  Sex: Female

DRUGS (3)
  1. TRASTUZUMAB [Suspect]
     Active Substance: TRASTUZUMAB
     Indication: Endometrial cancer metastatic
     Dosage: START OF THERAPY 05/03/2024 - THERAPY EVERY 21 DAYS - II CYCLE
     Route: 041
     Dates: start: 20240326, end: 20240326
  2. CARBOPLATIN [Suspect]
     Active Substance: CARBOPLATIN
     Indication: Endometrial cancer metastatic
     Dosage: START OF THERAPY 01/23/2024 - THERAPY EVERY 21 DAYS - IV CYCLE
     Route: 065
     Dates: start: 20240326, end: 20240326
  3. PACLITAXEL [Suspect]
     Active Substance: PACLITAXEL
     Indication: Endometrial cancer metastatic
     Dosage: START OF THERAPY 01/23/2024 - THERAPY EVERY 21 DAYS - IV CYCLE
     Route: 065
     Dates: start: 20240326, end: 20240326

REACTIONS (2)
  - Off label use [Unknown]
  - Vomiting [Recovered/Resolved]

NARRATIVE: CASE EVENT DATE: 20240326
